FAERS Safety Report 12474079 (Version 1)
Quarter: 2016Q2

REPORT INFORMATION
  Report Type: Spontaneous
  Country: US (occurrence: US)
  Receive Date: 20160616
  Receipt Date: 20160616
  Transmission Date: 20160815
  Serious: No
  Sender: FDA-Public Use
  Company Number: US-ELI_LILLY_AND_COMPANY-US201511003203

PATIENT
  Age: 69 Year
  Sex: Male

DRUGS (6)
  1. METFORMIN [Concomitant]
     Active Substance: METFORMIN HYDROCHLORIDE
  2. HUMULIN N [Suspect]
     Active Substance: INSULIN HUMAN
     Indication: TYPE 2 DIABETES MELLITUS
     Dosage: UNK, BID
     Route: 065
     Dates: start: 201411
  3. HUMULIN N [Suspect]
     Active Substance: INSULIN HUMAN
     Dosage: UNK, BID
     Route: 065
     Dates: start: 2001
  4. GLIPIZIDE. [Concomitant]
     Active Substance: GLIPIZIDE
  5. ACTOS [Concomitant]
     Active Substance: PIOGLITAZONE HYDROCHLORIDE
  6. HUMULIN N [Suspect]
     Active Substance: INSULIN HUMAN
     Dosage: UNK, BID
     Route: 065

REACTIONS (2)
  - Injection site haemorrhage [Unknown]
  - No adverse event [Unknown]

NARRATIVE: CASE EVENT DATE: 201511
